FAERS Safety Report 6885446-4 (Version None)
Quarter: 2010Q3

REPORT INFORMATION
  Report Type: 
  Country: None (occurrence: None)
  Receive Date: 20100729
  Receipt Date: 20080228
  Transmission Date: 20110219
  Serious: Yes (Other)
  Sender: FDA-Public Use
  Company Number: US-PFIZER INC-2008018948

PATIENT
  Sex: Female
  Weight: 90.909 kg

DRUGS (3)
  1. CELEBREX [Suspect]
     Indication: FIBROMYALGIA
     Route: 048
     Dates: start: 20080218
  2. ALL OTHER THERAPEUTIC PRODUCTS [Concomitant]
  3. MUSCLE RELAXANTS [Concomitant]

REACTIONS (4)
  - HEADACHE [None]
  - MYOCARDIAL INFARCTION [None]
  - SWELLING FACE [None]
  - WEIGHT INCREASED [None]
